FAERS Safety Report 15521453 (Version 1)
Quarter: 2018Q4

REPORT INFORMATION
  Report Type: Report from Study
  Country: US (occurrence: US)
  Receive Date: 20181017
  Receipt Date: 20181017
  Transmission Date: 20190205
  Serious: No
  Sender: FDA-Public Use
  Company Number: US-AMGEN-USASL2018122589

PATIENT
  Age: 75 Year
  Sex: Female

DRUGS (2)
  1. REPATHA [Suspect]
     Active Substance: EVOLOCUMAB
     Indication: TYPE IIA HYPERLIPIDAEMIA
     Dosage: 140 MG, Q4WK
     Route: 065
  2. REPATHA [Suspect]
     Active Substance: EVOLOCUMAB
     Indication: CARDIOVASCULAR DISORDER
     Dosage: 140 MG, Q2WK
     Route: 065

REACTIONS (5)
  - Pain [Not Recovered/Not Resolved]
  - Balance disorder [Not Recovered/Not Resolved]
  - Asthenia [Not Recovered/Not Resolved]
  - Off label use [Unknown]
  - Mobility decreased [Recovering/Resolving]

NARRATIVE: CASE EVENT DATE: 201807
